FAERS Safety Report 7950048 (Version 4)
Quarter: 2017Q4

REPORT INFORMATION
  Report Type: Report from Study
  Country: US (occurrence: US)
  Receive Date: 20110518
  Receipt Date: 20171201
  Transmission Date: 20180321
  Serious: Yes (Hospitalization, Other)
  Sender: FDA-Public Use
  Company Number: US-ROCHE-774774

PATIENT
  Age: 49 Year
  Sex: Male
  Weight: 89 kg

DRUGS (8)
  1. LEXAPRO [Concomitant]
     Active Substance: ESCITALOPRAM OXALATE
     Indication: DEPRESSION
     Dosage: FREQUENCY: EVERY DAY
     Route: 065
  2. ZOFRAN [Concomitant]
     Active Substance: ONDANSETRON HYDROCHLORIDE
     Indication: NAUSEA
     Dosage: FREQUENCY: AS NEEDED
     Route: 065
  3. PERTUZUMAB. [Suspect]
     Active Substance: PERTUZUMAB
     Dosage: MAINTENANCE DOSE, LAST DOSE PRIOR TO SAE ON 12 APRIL 2011, PERMANENTLY DISCONTINUED
     Route: 042
  4. XANAX [Concomitant]
     Active Substance: ALPRAZOLAM
     Indication: ANXIETY
     Dosage: FREQUENCY: AS NEEDED
     Route: 065
  5. OCTREOTIDE. [Suspect]
     Active Substance: OCTREOTIDE
     Indication: NEUROENDOCRINE CARCINOMA
     Dosage: ROUTE: PUMP CONT, PERMANENTLY DISCONTINUED
     Route: 050
  6. PHENERGAN [Concomitant]
     Active Substance: PROMETHAZINE HYDROCHLORIDE
     Indication: NAUSEA
     Dosage: FREQUENCY: AS NEEDED
     Route: 065
  7. BEVACIZUMAB. [Suspect]
     Active Substance: BEVACIZUMAB
     Indication: NEUROENDOCRINE CARCINOMA
     Dosage: LAST DOSE PRIOR TO SAE ON 12 APRIL 2011, CYCLE 3, PERMANENTLY DISCONTINUED
     Route: 042
  8. PERTUZUMAB. [Suspect]
     Active Substance: PERTUZUMAB
     Indication: NEUROENDOCRINE CARCINOMA
     Dosage: LOADING DOSE AS PER PROTOCOL
     Route: 042
     Dates: start: 20110301, end: 20110301

REACTIONS (3)
  - Ileus [Recovered/Resolved]
  - Carcinoid syndrome [Recovered/Resolved]
  - Hypertension [Unknown]

NARRATIVE: CASE EVENT DATE: 20110412
